FAERS Safety Report 7831470-4 (Version None)
Quarter: 2011Q4

REPORT INFORMATION
  Report Type: 
  Country: None (occurrence: None)
  Receive Date: 20111021
  Receipt Date: 20111021
  Transmission Date: 20120403
  Serious: Yes (Life-Threatening)
  Sender: FDA-Public Use
  Company Number: None

PATIENT
  Age: 57 Year
  Sex: Female
  Weight: 70.4 kg

DRUGS (1)
  1. COPAXONE [Suspect]

REACTIONS (1)
  - BREAST CANCER STAGE I [None]
